FAERS Safety Report 9821777 (Version 1)
Quarter: 2014Q1

REPORT INFORMATION
  Report Type: Spontaneous
  Country: US (occurrence: US)
  Receive Date: 20140116
  Receipt Date: 20140116
  Transmission Date: 20141002
  Serious: Yes (Hospitalization, Disabling, Other)
  Sender: FDA-Public Use
  Company Number: US-PFIZER INC-2014013078

PATIENT
  Age: 50 Year
  Sex: Female

DRUGS (11)
  1. LYRICA [Suspect]
     Indication: NEUROPATHIC ARTHROPATHY
     Dosage: 150 MG, 3X/DAY
     Route: 048
     Dates: start: 201001, end: 2013
  2. LYRICA [Suspect]
     Dosage: 150 MG, 3X/DAY
     Route: 048
  3. TENORETIC [Concomitant]
     Dosage: UNK
  4. AMARYL [Concomitant]
     Dosage: UNK
  5. CLONIDINE [Concomitant]
     Dosage: UNK
  6. CLINORIL [Concomitant]
     Dosage: UNK
  7. METHADONE [Concomitant]
     Dosage: UNK
  8. HYDROCODONE [Concomitant]
     Dosage: UNK
  9. VITAMIN D [Concomitant]
     Dosage: UNK
  10. CINNAMON [Concomitant]
  11. CRANBERRY [Concomitant]

REACTIONS (13)
  - Off label use [Unknown]
  - Muscular weakness [Unknown]
  - Chest pain [Unknown]
  - Dyspnoea [Unknown]
  - Blood creatinine increased [Unknown]
  - Renal impairment [Unknown]
  - Nephrolithiasis [Unknown]
  - Back pain [Unknown]
  - Neuropathic arthropathy [Unknown]
  - Back injury [Unknown]
  - Gait disturbance [Unknown]
  - Limb injury [Unknown]
  - Pain [Unknown]
